FAERS Safety Report 14082079 (Version 1)
Quarter: 2017Q4

REPORT INFORMATION
  Report Type: Spontaneous
  Country: NL (occurrence: NL)
  Receive Date: 20171013
  Receipt Date: 20171013
  Transmission Date: 20180321
  Serious: Yes (Hospitalization)
  Sender: FDA-Public Use
  Company Number: NL-CONCORDIA PHARMACEUTICALS INC.-GSH201710-005755

PATIENT
  Age: 67 Year
  Sex: Female

DRUGS (20)
  1. LORATADINE. [Concomitant]
     Active Substance: LORATADINE
  2. METOPROLOL. [Concomitant]
     Active Substance: METOPROLOL
  3. DARBEPOETIN ALFA [Concomitant]
     Active Substance: DARBEPOETIN ALFA
  4. LEVOTHYROXINE. [Concomitant]
     Active Substance: LEVOTHYROXINE
  5. NITROGLYCERINE [Concomitant]
     Active Substance: NITROGLYCERIN
  6. BECLOMETASONE [Concomitant]
     Active Substance: BECLOMETHASONE DIPROPIONATE
  7. ALFACALCIDOL [Concomitant]
     Active Substance: ALFACALCIDOL
  8. IRBESARTAN. [Concomitant]
     Active Substance: IRBESARTAN
  9. PARACETAMOL [Concomitant]
     Active Substance: ACETAMINOPHEN
  10. AMLODIPINE [Concomitant]
     Active Substance: AMLODIPINE BESYLATE
  11. ATORVASTATIN [Concomitant]
     Active Substance: ATORVASTATIN
  12. LACTULOSE. [Concomitant]
     Active Substance: LACTULOSE
  13. CICLESONIDE [Concomitant]
     Active Substance: CICLESONIDE
  14. SODIUM BICARBONATE. [Concomitant]
     Active Substance: SODIUM BICARBONATE
  15. NOVORAPID [Concomitant]
     Active Substance: INSULIN ASPART
  16. LANTUS [Concomitant]
     Active Substance: INSULIN GLARGINE
  17. PREGABALIN. [Concomitant]
     Active Substance: PREGABALIN
  18. CLOPIDOGREL [Concomitant]
     Active Substance: CLOPIDOGREL BISULFATE
  19. FUROSEMIDE. [Concomitant]
     Active Substance: FUROSEMIDE
  20. POLYSTYRENE SULFONATE [Suspect]
     Active Substance: POLYSTYRENE SULFONIC ACID
     Indication: HYPERKALAEMIA
     Route: 048
     Dates: start: 201709, end: 20170925

REACTIONS (3)
  - Hypomagnesaemia [Recovered/Resolved]
  - Hypokalaemia [Recovered/Resolved]
  - Hypocalcaemia [Recovered/Resolved]

NARRATIVE: CASE EVENT DATE: 20170925
